FAERS Safety Report 26107470 (Version 1)
Quarter: 2025Q4

REPORT INFORMATION
  Report Type: Spontaneous
  Country: RU (occurrence: RU)
  Receive Date: 20251201
  Receipt Date: 20251201
  Transmission Date: 20260118
  Serious: Yes (Other)
  Sender: BAYER HEALTHCARE PHARMACEUTICALS INC.
  Company Number: RU-BAYER-2025A148976

PATIENT
  Age: 18 Year
  Sex: Female
  Weight: 47 kg

DRUGS (1)
  1. DROSPIRENONE\ETHINYL ESTRADIOL [Suspect]
     Active Substance: DROSPIRENONE\ETHINYL ESTRADIOL
     Indication: Contraception
     Dosage: UNK, QD
     Route: 048
     Dates: start: 202509

REACTIONS (2)
  - Urethral cyst [None]
  - Perineal swelling [None]

NARRATIVE: CASE EVENT DATE: 20250101
